FAERS Safety Report 5171086-4 (Version None)
Quarter: 2006Q4

REPORT INFORMATION
  Report Type: 
  Country: None (occurrence: None)
  Receive Date: 20061213
  Receipt Date: 20061110
  Transmission Date: 20070319
  Serious: Yes (Hospitalization)
  Sender: FDA-Public Use
  Company Number: JP-GLAXOSMITHKLINE-B0446402A

PATIENT
  Age: 54 Year
  Sex: Male

DRUGS (3)
  1. VALTREX [Suspect]
     Indication: HERPES ZOSTER
     Dosage: 500MG THREE TIMES PER DAY
     Route: 048
     Dates: start: 20061107, end: 20061109
  2. CYANOCOBALAMIN [Concomitant]
     Route: 065
  3. NEUROTROPIN [Concomitant]
     Route: 065

REACTIONS (5)
  - ALANINE AMINOTRANSFERASE INCREASED [None]
  - BLOOD UREA INCREASED [None]
  - EYE SWELLING [None]
  - PHARYNGOLARYNGEAL PAIN [None]
  - RASH [None]
